FAERS Safety Report 5394301-0 (Version None)
Quarter: 2007Q3

REPORT INFORMATION
  Report Type: 
  Country: None (occurrence: None)
  Receive Date: 20070723
  Receipt Date: 20070523
  Transmission Date: 20080115
  Serious: No
  Sender: FDA-Public Use
  Company Number: A0652619A

PATIENT
  Age: 37 Year
  Sex: Male

DRUGS (3)
  1. AVANDIA [Suspect]
     Dosage: 2MG PER DAY
     Route: 048
     Dates: start: 20070401, end: 20070521
  2. PRAVASTATIN [Concomitant]
  3. DIOVAN [Concomitant]

REACTIONS (2)
  - CHEST PAIN [None]
  - DRUG ADMINISTRATION ERROR [None]
